FAERS Safety Report 9001367 (Version 1)
Quarter: 2013Q1

REPORT INFORMATION
  Report Type: Spontaneous
  Country: TW (occurrence: TW)
  Receive Date: 20130107
  Receipt Date: 20130107
  Transmission Date: 20140127
  Serious: Yes (Hospitalization)
  Sender: FDA-Public Use
  Company Number: TW-MYLANLABS-2012S1026555

PATIENT
  Age: 55 Year
  Sex: Male

DRUGS (8)
  1. BACLOFEN [Suspect]
     Indication: INTENTIONAL OVERDOSE
     Dosage: 420MG
     Route: 048
  2. BACLOFEN [Suspect]
     Indication: MUSCLE SPASTICITY
     Dosage: 420MG
     Route: 048
  3. BACLOFEN [Suspect]
     Indication: INTENTIONAL OVERDOSE
     Route: 048
  4. BACLOFEN [Suspect]
     Indication: MUSCLE SPASTICITY
     Route: 048
  5. IRBESARTAN [Suspect]
     Indication: INTENTIONAL OVERDOSE
     Dosage: 1050MG
     Route: 048
  6. IRBESARTAN [Suspect]
     Indication: HYPERTENSION
     Dosage: 1050MG
     Route: 048
  7. IRBESARTAN [Suspect]
     Indication: INTENTIONAL OVERDOSE
     Route: 048
  8. IRBESARTAN [Suspect]
     Indication: HYPERTENSION
     Route: 048

REACTIONS (3)
  - Coma [Recovered/Resolved]
  - Respiratory depression [Recovered/Resolved]
  - Intentional overdose [Recovered/Resolved]
